FAERS Safety Report 13125860 (Version 5)
Quarter: 2017Q2

REPORT INFORMATION
  Report Type: Report from Study
  Country: US (occurrence: US)
  Receive Date: 20170118
  Receipt Date: 20170504
  Transmission Date: 20170830
  Serious: Yes (Other)
  Sender: FDA-Public Use
  Company Number: US-PFIZER INC-2017020690

PATIENT
  Age: 57 Year
  Sex: Male
  Weight: 70.75 kg

DRUGS (1)
  1. SUTENT [Suspect]
     Active Substance: SUNITINIB MALATE
     Indication: RENAL CELL CARCINOMA
     Dosage: 50 MG, 1X/DAY
     Route: 048
     Dates: start: 20170108

REACTIONS (17)
  - Dry skin [Recovered/Resolved]
  - Weight increased [Unknown]
  - Pyrexia [Unknown]
  - Headache [Recovered/Resolved]
  - Decreased appetite [Unknown]
  - Faeces discoloured [Unknown]
  - Pneumonia [Unknown]
  - Cough [Unknown]
  - Weight decreased [Unknown]
  - Stomatitis [Recovered/Resolved]
  - Musculoskeletal chest pain [Unknown]
  - Pain in extremity [Unknown]
  - Energy increased [Unknown]
  - Neck pain [Recovered/Resolved]
  - Anorectal discomfort [Unknown]
  - Neoplasm progression [Unknown]
  - Pleural effusion [Unknown]

NARRATIVE: CASE EVENT DATE: 20170108
